FAERS Safety Report 15767832 (Version 2)
Quarter: 2019Q1

REPORT INFORMATION
  Report Type: Report from Study
  Country: JP (occurrence: JP)
  Receive Date: 20181227
  Receipt Date: 20190124
  Transmission Date: 20190417
  Serious: Yes (Other)
  Sender: FDA-Public Use
  Company Number: JP-TEVA-2018-JP-992678

PATIENT

DRUGS (1)
  1. ARIPIPRAZOLE. [Suspect]
     Active Substance: ARIPIPRAZOLE
     Indication: MAJOR DEPRESSION
     Dosage: STARTING DOSE OF 3MG FOLLOWED BY A MAINTENANCE DOSE IN THE RANGE OF 3MG TO 15MG
     Route: 065

REACTIONS (1)
  - Mania [Unknown]
